FAERS Safety Report 26038446 (Version 1)
Quarter: 2025Q4

REPORT INFORMATION
  Report Type: Spontaneous
  Country: EU (occurrence: EU)
  Receive Date: 20251113
  Receipt Date: 20251113
  Transmission Date: 20260118
  Serious: Yes (Death, Hospitalization)
  Sender: BOEHRINGER INGELHEIM
  Company Number: None

PATIENT
  Age: 80 Year
  Sex: Male

DRUGS (1)
  1. PRADAXA [Suspect]
     Active Substance: DABIGATRAN ETEXILATE MESYLATE
     Indication: Atrial fibrillation
     Dosage: COATED GRANULES
     Dates: end: 20250517

REACTIONS (9)
  - Anaemia [Fatal]
  - Presyncope [Fatal]
  - Fall [Fatal]
  - Condition aggravated [Fatal]
  - Gastrointestinal haemorrhage [Fatal]
  - Haemoglobin decreased [Fatal]
  - Poor peripheral circulation [Fatal]
  - Blood pressure decreased [Fatal]
  - Heart rate decreased [Fatal]

NARRATIVE: CASE EVENT DATE: 20250517
